FAERS Safety Report 4375372-7 (Version None)
Quarter: 2004Q2

REPORT INFORMATION
  Report Type: 
  Country: None (occurrence: None)
  Receive Date: 20040602
  Receipt Date: 20040513
  Transmission Date: 20050107
  Serious: Yes (Hospitalization)
  Sender: FDA-Public Use
  Company Number: ZLBIGIV/04/16/USA

PATIENT
  Age: 73 Year
  Sex: Male
  Weight: 94.14 kg

DRUGS (12)
  1. CARIMUNE [Suspect]
     Indication: POLYNEUROPATHY IDIOPATHIC PROGRESSIVE
     Dosage: 40 G, I.V.
     Route: 042
     Dates: start: 20040503, end: 20040503
  2. CARIMUNE [Suspect]
     Indication: POLYNEUROPATHY IDIOPATHIC PROGRESSIVE
     Dosage: 40 G, I.V.
     Route: 042
     Dates: start: 20040505, end: 20040508
  3. DIPHENHYDRAMINE HCL [Suspect]
     Indication: PREMEDICATION
     Dosage: 50 MG, ONCE, P.O.
     Route: 048
     Dates: start: 20040503, end: 20040503
  4. DIPHENHYDRAMINE HCL [Suspect]
     Indication: PREMEDICATION
     Dosage: 50 MG, ONCE, P.O.
     Route: 048
     Dates: start: 20040505, end: 20040505
  5. PREDNISOL (PREDNISOLONE SODIUM PHOSPHATE) [Concomitant]
  6. RISPERDAL [Concomitant]
  7. ATENOLOL [Concomitant]
  8. RANITIDINE [Concomitant]
  9. CLONAZEPAM [Concomitant]
  10. HEPARIN [Concomitant]
  11. SULINDAC [Concomitant]
  12. PRN SENNA (LAXATIVES) [Concomitant]

REACTIONS (2)
  - AGITATION [None]
  - CONFUSIONAL STATE [None]
